FAERS Safety Report 6129197-2 (Version None)
Quarter: 2009Q1

REPORT INFORMATION
  Report Type: 
  Country: None (occurrence: None)
  Receive Date: 20090323
  Receipt Date: 20090323
  Transmission Date: 20090719
  Serious: No
  Sender: FDA-Public Use
  Company Number: None

PATIENT
  Age: 73 Year
  Sex: Male

DRUGS (2)
  1. PROAIR HFA [Suspect]
     Indication: CHRONIC OBSTRUCTIVE PULMONARY DISEASE
     Dosage: INHALER
  2. PROAIR HFA [Suspect]
     Indication: DYSPNOEA
     Dosage: INHALER

REACTIONS (3)
  - DEVICE FAILURE [None]
  - DRUG INEFFECTIVE [None]
  - DYSPNOEA [None]
